FAERS Safety Report 19756947 (Version 1)
Quarter: 2021Q3

REPORT INFORMATION
  Report Type: Spontaneous
  Country: US (occurrence: US)
  Receive Date: 20210828
  Receipt Date: 20210828
  Transmission Date: 20211014
  Serious: No
  Sender: FDA-Public Use
  Company Number: US-JNJFOC-20210838058

PATIENT
  Age: 57 Year
  Sex: Male

DRUGS (2)
  1. MENS ROGAINE EXTRA STRENGTH [Suspect]
     Active Substance: MINOXIDIL
     Indication: ALOPECIA
     Dosage: A CAPFUL. AT FIRST, I AM USING THIS TWICE A DAY BASED ON THE DIRECTIONS. BUT WHEN I STARTED NOTICING
     Route: 061
     Dates: start: 20210809, end: 202108
  2. MENS ROGAINE EXTRA STRENGTH [Suspect]
     Active Substance: MINOXIDIL
     Dosage: A CAPFUL. AT FIRST, I AM USING THIS TWICE A DAY BASED ON THE DIRECTIONS. BUT WHEN I STARTED NOTICING
     Route: 061
     Dates: start: 202108, end: 202108

REACTIONS (3)
  - Dark circles under eyes [Recovered/Resolved]
  - Headache [Recovered/Resolved]
  - Overdose [Unknown]

NARRATIVE: CASE EVENT DATE: 202108
